FAERS Safety Report 10191643 (Version 1)
Quarter: 2014Q2

REPORT INFORMATION
  Report Type: Spontaneous
  Country: JP (occurrence: JP)
  Receive Date: 20140523
  Receipt Date: 20140523
  Transmission Date: 20141212
  Serious: Yes (Life-Threatening, Other)
  Sender: FDA-Public Use
  Company Number: JP-WATSON-2014-10534

PATIENT
  Age: 44 Year
  Sex: Male

DRUGS (1)
  1. PREDNISOLONE (UNKNOWN) [Suspect]
     Indication: NEPHROTIC SYNDROME
     Dosage: 12.5 MG, DAILY
     Route: 065

REACTIONS (2)
  - Coronary artery dissection [Recovered/Resolved]
  - Vascular fragility [Unknown]
